FAERS Safety Report 16972960 (Version 4)
Quarter: 2020Q3

REPORT INFORMATION
  Report Type: Spontaneous
  Country: US (occurrence: US)
  Receive Date: 20191030
  Receipt Date: 20200824
  Transmission Date: 20201102
  Serious: Yes (Hospitalization, Other)
  Sender: FDA-Public Use
  Company Number: US-GILEAD-2019-0434697

PATIENT
  Age: 45 Year
  Sex: Male
  Weight: 76.64 kg

DRUGS (22)
  1. ATRIPLA [Suspect]
     Active Substance: EFAVIRENZ\EMTRICITABINE\TENOFOVIR DISOPROXIL FUMARATE
     Indication: HIV INFECTION
     Dosage: UNK
     Route: 048
     Dates: start: 200607, end: 201905
  2. VIREAD [Suspect]
     Active Substance: TENOFOVIR DISOPROXIL FUMARATE
     Indication: HIV INFECTION
     Dosage: UNK
     Route: 048
     Dates: start: 201805, end: 201812
  3. AMMONIUM LACTATE. [Concomitant]
     Active Substance: AMMONIUM LACTATE
  4. FLUCONAZOLE. [Concomitant]
     Active Substance: FLUCONAZOLE
  5. BIKTARVY [Concomitant]
     Active Substance: BICTEGRAVIR SODIUM\EMTRICITABINE\TENOFOVIR ALAFENAMIDE FUMARATE
  6. BACTRIM [Concomitant]
     Active Substance: SULFAMETHOXAZOLE\TRIMETHOPRIM
  7. LEVOFLOXACIN. [Concomitant]
     Active Substance: LEVOFLOXACIN
  8. OFLOXACIN. [Concomitant]
     Active Substance: OFLOXACIN
  9. FLONASE [Concomitant]
     Active Substance: FLUTICASONE PROPIONATE
  10. ASPIRIN [ACETYLSALICYLIC ACID] [Concomitant]
     Active Substance: ASPIRIN
  11. GABAPENTIN. [Concomitant]
     Active Substance: GABAPENTIN
  12. TRAMADOL. [Concomitant]
     Active Substance: TRAMADOL
  13. KETOCONAZOLE. [Concomitant]
     Active Substance: KETOCONAZOLE
  14. ACETAMINOPHEN. [Concomitant]
     Active Substance: ACETAMINOPHEN
  15. CLOTRIMAZOLE. [Concomitant]
     Active Substance: CLOTRIMAZOLE
  16. AMOXICILLIN. [Concomitant]
     Active Substance: AMOXICILLIN
  17. CORTISONE [Concomitant]
     Active Substance: CORTISONE
  18. TRIAMCINOLONE [Concomitant]
     Active Substance: TRIAMCINOLONE
  19. VENTOLIN [Concomitant]
     Active Substance: ALBUTEROL SULFATE
  20. SYNDROS [Concomitant]
     Active Substance: DRONABINOL
  21. NYSTATIN. [Concomitant]
     Active Substance: NYSTATIN
  22. MUPIROCIN. [Concomitant]
     Active Substance: MUPIROCIN

REACTIONS (10)
  - Bone density decreased [Not Recovered/Not Resolved]
  - Economic problem [Unknown]
  - Emotional distress [Not Recovered/Not Resolved]
  - Anhedonia [Unknown]
  - Pain [Not Recovered/Not Resolved]
  - Cervical vertebral fracture [Unknown]
  - Foot fracture [Unknown]
  - Wrist fracture [Unknown]
  - Anxiety [Not Recovered/Not Resolved]
  - Ankle fracture [Unknown]

NARRATIVE: CASE EVENT DATE: 20150721
